FAERS Safety Report 10098305 (Version 1)
Quarter: 2014Q2

REPORT INFORMATION
  Report Type: Spontaneous
  Country: BR (occurrence: BR)
  Receive Date: 20140423
  Receipt Date: 20140423
  Transmission Date: 20141212
  Serious: Yes (Hospitalization, Other)
  Sender: FDA-Public Use
  Company Number: BR-JNJFOC-20140411808

PATIENT
  Age: 23 Year
  Sex: Male

DRUGS (4)
  1. HALDOL [Suspect]
     Indication: SCHIZOPHRENIA
     Route: 065
     Dates: start: 200906, end: 201006
  2. CARBOLITIUM [Interacting]
     Indication: PRODUCT USED FOR UNKNOWN INDICATION
     Route: 065
  3. AKINETON [Concomitant]
     Route: 065
  4. DIAZEPAM [Concomitant]
     Route: 065

REACTIONS (9)
  - Tardive dyskinesia [Not Recovered/Not Resolved]
  - Delirium [Recovered/Resolved]
  - Road traffic accident [Recovered/Resolved]
  - Hiatus hernia [Unknown]
  - Drug interaction [Recovered/Resolved]
  - Tremor [Recovered/Resolved]
  - Injury [Recovered/Resolved]
  - Weight decreased [Recovered/Resolved]
  - Off label use [Unknown]
